FAERS Safety Report 7015147-3 (Version None)
Quarter: 2010Q3

REPORT INFORMATION
  Report Type: 
  Country: None (occurrence: None)
  Receive Date: 20100927
  Receipt Date: 20100107
  Transmission Date: 20110219
  Serious: No
  Sender: FDA-Public Use
  Company Number: US-ASTRAZENECA-2010SE00778

PATIENT
  Age: 71 Year
  Sex: Female
  Weight: 95.3 kg

DRUGS (13)
  1. ARIMIDEX [Suspect]
     Indication: BREAST CANCER
     Route: 048
     Dates: end: 20100102
  2. FEMARA [Suspect]
     Indication: BREAST CANCER
     Route: 065
  3. SOTALOL [Concomitant]
  4. PRILOSEC [Concomitant]
     Indication: ULCER
  5. LISINOPRIL [Concomitant]
  6. PROZAC [Concomitant]
  7. HYDROCHLOROTHIAZIDE [Concomitant]
  8. COUMADIN [Concomitant]
  9. SIMVASTATIN [Concomitant]
     Indication: BLOOD CHOLESTEROL
  10. VITAMINS [Concomitant]
  11. FISH OIL [Concomitant]
  12. CITRACAL [Concomitant]
  13. GLUCOSAMINE/CHONDROITIN [Concomitant]

REACTIONS (2)
  - ADVERSE DRUG REACTION [None]
  - ALOPECIA [None]
